FAERS Safety Report 11862136 (Version 1)
Quarter: 2015Q4

REPORT INFORMATION
  Report Type: Spontaneous
  Country: US (occurrence: None)
  Receive Date: 20151222
  Receipt Date: 20151222
  Transmission Date: 20160305
  Serious: Yes (Hospitalization)
  Sender: FDA-Public Use
  Company Number: None

PATIENT
  Age: 45 Year
  Sex: Female
  Weight: 58.51 kg

DRUGS (3)
  1. PREDNISONE. [Concomitant]
     Active Substance: PREDNISONE
  2. IMURAN [Concomitant]
     Active Substance: AZATHIOPRINE
  3. RITUXAN [Suspect]
     Active Substance: RITUXIMAB
     Indication: RHEUMATOID ARTHRITIS
     Dosage: 1000MG?IV?Q4M?2009?LAST DOSE
     Route: 042
     Dates: start: 2009

REACTIONS (6)
  - Hypertension [None]
  - Arthritis infective [None]
  - Mycoplasma test positive [None]
  - Nephrolithiasis [None]
  - Urinary tract infection [None]
  - Hyperlipidaemia [None]

NARRATIVE: CASE EVENT DATE: 201512
